FAERS Safety Report 25617708 (Version 1)
Quarter: 2025Q3

REPORT INFORMATION
  Report Type: Spontaneous
  Country: CO (occurrence: CO)
  Receive Date: 20250729
  Receipt Date: 20250729
  Transmission Date: 20251020
  Serious: Yes (Other)
  Sender: PFIZER
  Company Number: CO-PFIZER INC-PV202500090950

PATIENT
  Age: 55 Year
  Sex: Female

DRUGS (1)
  1. LORBRENA [Suspect]
     Active Substance: LORLATINIB
     Indication: Neoplasm
     Dosage: 100 MG, DAILY

REACTIONS (4)
  - Pleural effusion [Unknown]
  - Vomiting [Unknown]
  - Cough [Unknown]
  - Pulmonary pain [Unknown]
